FAERS Safety Report 5910046-X (Version None)
Quarter: 2008Q4

REPORT INFORMATION
  Report Type: 
  Country: None (occurrence: None)
  Receive Date: 20081007
  Receipt Date: 20070816
  Transmission Date: 20090506
  Serious: No
  Sender: FDA-Public Use
  Company Number: US-ASTRAZENECA-2007UW19772

PATIENT
  Age: 80 Year
  Sex: Female
  Weight: 56.7 kg

DRUGS (7)
  1. ARIMIDEX [Suspect]
     Indication: BREAST CANCER
     Route: 048
     Dates: start: 20050101
  2. LEVOTHYROXINE SODIUM [Concomitant]
  3. LORAZEPAM [Concomitant]
  4. ASPIRIN [Concomitant]
     Route: 048
  5. LISINOPRIL [Concomitant]
  6. DUPHARON [Concomitant]
  7. NITROFURANTOINE [Concomitant]

REACTIONS (7)
  - ARTHRALGIA [None]
  - BACK PAIN [None]
  - DEPRESSION [None]
  - HOT FLUSH [None]
  - MOOD ALTERED [None]
  - MUSCULOSKELETAL DISCOMFORT [None]
  - PAIN [None]
